FAERS Safety Report 8236174-4 (Version None)
Quarter: 2012Q1

REPORT INFORMATION
  Report Type: 
  Country: None (occurrence: None)
  Receive Date: 20120327
  Receipt Date: 20120319
  Transmission Date: 20120608
  Serious: No
  Sender: FDA-Public Use
  Company Number: US-BIOGENIDEC-2012BI009670

PATIENT
  Sex: Female

DRUGS (3)
  1. TYSABRI [Suspect]
     Indication: MULTIPLE SCLEROSIS
     Route: 042
  2. AVONEX [Concomitant]
     Indication: MULTIPLE SCLEROSIS
     Route: 030
     Dates: start: 19940601
  3. TYSABRI [Suspect]
     Route: 042
     Dates: start: 20111111

REACTIONS (4)
  - MUSCLE SPASMS [None]
  - FATIGUE [None]
  - INFLUENZA LIKE ILLNESS [None]
  - NIGHT SWEATS [None]
